FAERS Safety Report 8119297 (Version 2)
Quarter: 2014Q3

REPORT INFORMATION
  Report Type: Spontaneous
  Country: FR (occurrence: FR)
  Receive Date: 20110902
  Receipt Date: 20140715
  Transmission Date: 20150326
  Serious: Yes (Hospitalization)
  Sender: FDA-Public Use
  Company Number: FR-PFIZER INC-2011201459

PATIENT
  Age: 7 Year
  Sex: Male
  Weight: 27 kg

DRUGS (4)
  1. ADVIL [Suspect]
     Active Substance: IBUPROFEN
     Dosage: UNK
     Dates: start: 20110716, end: 20110718
  2. OROKEN [Suspect]
     Active Substance: CEFIXIME
     Dosage: UNK
     Dates: start: 20110716, end: 20110718
  3. PARACETAMOL [Suspect]
     Active Substance: ACETAMINOPHEN
     Indication: NASOPHARYNGITIS
     Dosage: UNK
     Dates: start: 20110715, end: 20110718
  4. SOLUPRED [Suspect]
     Active Substance: PREDNISOLONE
     Dosage: UNK
     Dates: start: 20110716, end: 20110718

REACTIONS (3)
  - Acute respiratory failure [Recovered/Resolved with Sequelae]
  - Stevens-Johnson syndrome [Recovered/Resolved with Sequelae]
  - Eye disorder [Recovered/Resolved]

NARRATIVE: CASE EVENT DATE: 20110720
